FAERS Safety Report 11330655 (Version 1)
Quarter: 2015Q3

REPORT INFORMATION
  Report Type: Spontaneous
  Country: US (occurrence: None)
  Receive Date: 20150730
  Receipt Date: 20150730
  Transmission Date: 20151125
  Serious: Yes (Other)
  Sender: FDA-Public Use
  Company Number: None

PATIENT
  Age: 69 Year
  Sex: Female
  Weight: 82.1 kg

DRUGS (14)
  1. CALCIUM [Concomitant]
     Active Substance: CALCIUM
  2. TAMOXIFEN [Suspect]
     Active Substance: TAMOXIFEN
     Indication: CANCER HORMONAL THERAPY
     Route: 048
     Dates: start: 20150403, end: 20150720
  3. TAMOXIFEN [Suspect]
     Active Substance: TAMOXIFEN
     Indication: RADIOTHERAPY
     Route: 048
     Dates: start: 20150403, end: 20150720
  4. SYNTHROID [Concomitant]
     Active Substance: LEVOTHYROXINE SODIUM
  5. PRAVASTATIN [Concomitant]
     Active Substance: PRAVASTATIN\PRAVASTATIN SODIUM
  6. MAGNESIUM [Concomitant]
     Active Substance: MAGNESIUM
  7. RESVERATROL [Concomitant]
     Active Substance: RESVERATROL
  8. SPIRONOLACTONE. [Concomitant]
     Active Substance: SPIRONOLACTONE
  9. CO-Q10 [Concomitant]
  10. SELENIUM [Concomitant]
     Active Substance: SELENIUM
  11. CYTOMEL [Concomitant]
     Active Substance: LIOTHYRONINE SODIUM
  12. MULTI-VITE [Concomitant]
  13. VIT D. [Concomitant]
  14. TAMOXIFEN [Suspect]
     Active Substance: TAMOXIFEN
     Indication: BREAST OPERATION
     Route: 048
     Dates: start: 20150403, end: 20150720

REACTIONS (2)
  - Muscle spasms [None]
  - Pain in extremity [None]
